FAERS Safety Report 23916289 (Version 1)
Quarter: 2024Q2

REPORT INFORMATION
  Report Type: Spontaneous
  Country: US (occurrence: None)
  Receive Date: 20240529
  Receipt Date: 20240529
  Transmission Date: 20240716
  Serious: Yes (Hospitalization)
  Sender: FDA-Public Use
  Company Number: None

PATIENT
  Age: 61 Year
  Sex: Female

DRUGS (9)
  1. TALTZ [Suspect]
     Active Substance: IXEKIZUMAB
     Indication: Ankylosing spondylitis
     Dosage: FREQUENCY : AS DIRECTED;?
     Route: 058
     Dates: start: 20221122
  2. ABILIFY [Concomitant]
     Active Substance: ARIPIPRAZOLE
  3. ATORVASTATIN [Concomitant]
     Active Substance: ATORVASTATIN
  4. CYMBALTA [Concomitant]
     Active Substance: DULOXETINE HYDROCHLORIDE
  5. DICLOFENAC [Concomitant]
     Active Substance: DICLOFENAC
  6. KLONOPIN [Concomitant]
     Active Substance: CLONAZEPAM
  7. PREGABALIN [Concomitant]
     Active Substance: PREGABALIN
  8. SOMA [Concomitant]
     Active Substance: CARISOPRODOL
  9. TRAZODONE [Concomitant]
     Active Substance: TRAZODONE HYDROCHLORIDE

REACTIONS (2)
  - Intracranial aneurysm [None]
  - Headache [None]

NARRATIVE: CASE EVENT DATE: 20240521
